FAERS Safety Report 21822524 (Version 2)
Quarter: 2023Q1

REPORT INFORMATION
  Report Type: Report from Study
  Country: AU (occurrence: AU)
  Receive Date: 20230105
  Receipt Date: 20230209
  Transmission Date: 20230418
  Serious: Yes (Hospitalization)
  Sender: FDA-Public Use
  Company Number: AU-ABBVIE-4257262

PATIENT
  Sex: Male

DRUGS (4)
  1. CARBIDOPA\LEVODOPA [Suspect]
     Active Substance: CARBIDOPA\LEVODOPA
     Indication: Parkinson^s disease
     Dosage: 100ML GEL CASSETTE. MORNING DOSE WAS 13 MILLILITERS(MLS). CONTINUOUS DOSE WAS 3.4 MLS/ HOUR. EXTR...
     Route: 050
     Dates: start: 20220526
  2. CARBIDOPA\LEVODOPA [Suspect]
     Active Substance: CARBIDOPA\LEVODOPA
  3. QUETIAPINE [Concomitant]
     Active Substance: QUETIAPINE
     Indication: Product used for unknown indication
  4. AMANTADINE [Concomitant]
     Active Substance: AMANTADINE
     Indication: Product used for unknown indication

REACTIONS (7)
  - Paranoia [Unknown]
  - Delusion [Unknown]
  - Emotional distress [Unknown]
  - Hallucination [Unknown]
  - Incorrect route of product administration [Unknown]
  - Device dislocation [Unknown]
  - Dyskinesia [Unknown]
